FAERS Safety Report 10188741 (Version 1)
Quarter: 2014Q2

REPORT INFORMATION
  Report Type: Spontaneous
  Country: ES (occurrence: ES)
  Receive Date: 20140522
  Receipt Date: 20140522
  Transmission Date: 20141212
  Serious: Yes (Other)
  Sender: FDA-Public Use
  Company Number: ES-B.I. PHARMACEUTICALS,INC./RIDGEFIELD-2014-BI-21331ES

PATIENT
  Age: 56 Year
  Sex: Male

DRUGS (3)
  1. GIOTRIF [Suspect]
     Indication: LUNG CARCINOMA CELL TYPE UNSPECIFIED STAGE IV
     Route: 048
     Dates: start: 20140414
  2. RADIOTHERAPY [Concomitant]
     Indication: LUNG ADENOCARCINOMA STAGE IV
     Route: 065
     Dates: start: 201402
  3. RADIOTHERAPY [Concomitant]
     Indication: METASTASES TO LUNG

REACTIONS (1)
  - Acne cystic [Not Recovered/Not Resolved]
